FAERS Safety Report 23433526 (Version 1)
Quarter: 2024Q1

REPORT INFORMATION
  Report Type: Spontaneous
  Country: US (occurrence: US)
  Receive Date: 20240123
  Receipt Date: 20240123
  Transmission Date: 20240409
  Serious: No
  Sender: FDA-Public Use
  Company Number: US-PFIZER INC-202400018186

PATIENT
  Age: 64 Year
  Sex: Female
  Weight: 63.5 kg

DRUGS (11)
  1. LEVOXYL [Suspect]
     Active Substance: LEVOTHYROXINE SODIUM
     Indication: Thyroidectomy
     Dosage: 50 UG
  2. LEVOXYL [Suspect]
     Active Substance: LEVOTHYROXINE SODIUM
     Indication: Radioactive iodine therapy
     Dosage: 75 UG
  3. LEVOXYL [Suspect]
     Active Substance: LEVOTHYROXINE SODIUM
     Indication: Graves^ disease
     Dosage: 88 UG
  4. LEVOXYL [Suspect]
     Active Substance: LEVOTHYROXINE SODIUM
     Dosage: 100 UG, 1X/DAY
     Route: 048
  5. LEVOXYL [Suspect]
     Active Substance: LEVOTHYROXINE SODIUM
     Dosage: 100 UG, 1X/DAY [CUTTING SOME OF TABLET OFF]
     Route: 048
  6. CARVEDILOL [Concomitant]
     Active Substance: CARVEDILOL
     Indication: Cardiomyopathy
     Dosage: 22 MG, 1X/DAY [ABOUT 22MG, 25MG ONCE A DAY IS TOO MUCH]
     Dates: start: 1998
  7. CARVEDILOL [Concomitant]
     Active Substance: CARVEDILOL
     Dosage: 12.5 MG, 2X/DAY
     Route: 048
  8. CARVEDILOL [Concomitant]
     Active Substance: CARVEDILOL
     Dosage: 6.25 MG, 2X/DAY
     Route: 048
  9. CARVEDILOL [Concomitant]
     Active Substance: CARVEDILOL
     Dosage: 3.125 MG, 2X/DAY
     Route: 048
  10. LISINOPRIL [Concomitant]
     Active Substance: LISINOPRIL
     Indication: Cardiomyopathy
     Dosage: 5 MG, 1X/DAY
     Route: 048
     Dates: start: 1995
  11. DIGOXIN [Concomitant]
     Active Substance: DIGOXIN
     Indication: Cardiomyopathy
     Dosage: 0.08 ML, 1X/DAY
     Route: 048

REACTIONS (7)
  - Blood glucose increased [Recovered/Resolved]
  - Hyperhidrosis [Unknown]
  - Palpitations [Unknown]
  - Apathy [Unknown]
  - Fatigue [Unknown]
  - Blood thyroid stimulating hormone decreased [Recovering/Resolving]
  - Wrong technique in product usage process [Unknown]

NARRATIVE: CASE EVENT DATE: 20230101
